FAERS Safety Report 6813580-3 (Version None)
Quarter: 2010Q3

REPORT INFORMATION
  Report Type: 
  Country: None (occurrence: None)
  Receive Date: 20100701
  Receipt Date: 20100623
  Transmission Date: 20110219
  Serious: Yes (Hospitalization)
  Sender: FDA-Public Use
  Company Number: BR-ABBOTT-10P-020-0634063-00

PATIENT
  Age: 4 Year
  Sex: Male

DRUGS (2)
  1. VALPAKINE [Suspect]
     Indication: INFANTILE SPASMS
  2. CLOBAZAM [Concomitant]
     Indication: INFANTILE SPASMS

REACTIONS (6)
  - ANAEMIA [None]
  - HYPOALBUMINAEMIA [None]
  - HYPONATRAEMIA [None]
  - MACROCYTOSIS [None]
  - THROMBOCYTOPENIA [None]
  - VITAMIN B12 DEFICIENCY [None]
